FAERS Safety Report 21757460 (Version 1)
Quarter: 2022Q4

REPORT INFORMATION
  Report Type: Spontaneous
  Country: ZA (occurrence: ZA)
  Receive Date: 20221221
  Receipt Date: 20221221
  Transmission Date: 20230113
  Serious: Yes (Other)
  Sender: FDA-Public Use
  Company Number: ZA-SUN PHARMACEUTICAL INDUSTRIES LTD-2022RR-369353

PATIENT
  Sex: Male

DRUGS (6)
  1. ROSUVASTATIN [Suspect]
     Active Substance: ROSUVASTATIN
     Indication: Type IIa hyperlipidaemia
     Dosage: 40 MILLIGRAM, DAILY
  2. EZETIMIBE [Suspect]
     Active Substance: EZETIMIBE
     Indication: Type IIa hyperlipidaemia
     Dosage: 10 MILLIGRAM, DAILY
     Route: 065
  3. ASPIRIN [Concomitant]
     Active Substance: ASPIRIN
     Indication: Type IIa hyperlipidaemia
     Dosage: 81 MILLIGRAM, DAILY
     Route: 065
  4. LOMITAPIDE [Concomitant]
     Active Substance: LOMITAPIDE
     Indication: Type IIa hyperlipidaemia
     Dosage: 60 MILLIGRAM, DAILY
     Route: 065
  5. LOMITAPIDE [Concomitant]
     Active Substance: LOMITAPIDE
     Dosage: 40 MILLIGRAM, DAILY
     Route: 065
  6. LOMITAPIDE [Concomitant]
     Active Substance: LOMITAPIDE
     Dosage: 20 MILLIGRAM, DAILY
     Route: 065

REACTIONS (1)
  - Liver function test increased [Recovered/Resolved]
